FAERS Safety Report 8189174-7 (Version None)
Quarter: 2012Q1

REPORT INFORMATION
  Report Type: 
  Country: None (occurrence: None)
  Receive Date: 20120306
  Receipt Date: 20120306
  Transmission Date: 20120608
  Serious: No
  Sender: FDA-Public Use
  Company Number: None

PATIENT
  Sex: Female

DRUGS (1)
  1. AMBIEN [Suspect]
     Dosage: ONE PO QHS
     Route: 048

REACTIONS (1)
  - THERAPEUTIC RESPONSE DECREASED [None]
